FAERS Safety Report 7585461-1 (Version None)
Quarter: 2011Q2

REPORT INFORMATION
  Report Type: 
  Country: None (occurrence: None)
  Receive Date: 20110624
  Receipt Date: 20110616
  Transmission Date: 20111010
  Serious: Yes (Life-Threatening)
  Sender: FDA-Public Use
  Company Number: 2011S1000197

PATIENT
  Age: 1 Month
  Sex: Male
  Weight: 1.13 kg

DRUGS (5)
  1. NITRIC OXIDE [Suspect]
     Indication: BRONCHOPULMONARY DYSPLASIA
     Dosage: 20;10; 5 PMM, CONT, INH
     Route: 055
     Dates: start: 20110523, end: 20110530
  2. NITRIC OXIDE [Suspect]
     Indication: BRONCHOPULMONARY DYSPLASIA
     Dosage: 20;10; 5 PMM, CONT, INH
     Route: 055
     Dates: start: 20110530, end: 20110613
  3. NITRIC OXIDE [Suspect]
     Indication: BRONCHOPULMONARY DYSPLASIA
     Dosage: 20;10; 5 PMM, CONT, INH
     Route: 055
     Dates: start: 20110520, end: 20110523
  4. PULMICORT [Concomitant]
  5. COFFEINE CITRATE [Concomitant]
     Indication: PROPHYLAXIS

REACTIONS (11)
  - APNOEIC ATTACK [None]
  - HYPOTENSION [None]
  - INTESTINAL DILATATION [None]
  - BACTERIAL INFECTION [None]
  - DISSEMINATED INTRAVASCULAR COAGULATION [None]
  - CYANOSIS [None]
  - PULMONARY HYPERTENSION [None]
  - BRADYCARDIA [None]
  - THROMBOCYTOPENIA [None]
  - HAEMATOCHEZIA [None]
  - SEPTIC SHOCK [None]
